FAERS Safety Report 20356652 (Version 1)
Quarter: 2022Q1

REPORT INFORMATION
  Report Type: Spontaneous
  Country: JP (occurrence: JP)
  Receive Date: 20220120
  Receipt Date: 20220120
  Transmission Date: 20220423
  Serious: Yes (Hospitalization)
  Sender: FDA-Public Use
  Company Number: JP-BAYER-2021A230784

PATIENT
  Age: 69 Year
  Sex: Male
  Weight: 71.2 kg

DRUGS (11)
  1. RIVAROXABAN [Suspect]
     Active Substance: RIVAROXABAN
     Indication: Atrial fibrillation
     Dosage: UNK
     Route: 048
     Dates: start: 20201124, end: 20201208
  2. RIVAROXABAN [Suspect]
     Active Substance: RIVAROXABAN
     Route: 048
     Dates: start: 20201208, end: 20211012
  3. PLAVIX [Interacting]
     Active Substance: CLOPIDOGREL BISULFATE
     Indication: Carotid arteriosclerosis
     Dosage: DAILY DOSE 75 MG
     Route: 048
     Dates: end: 20211012
  4. PLAVIX [Interacting]
     Active Substance: CLOPIDOGREL BISULFATE
     Indication: Cerebral artery stenosis
  5. CARVEDILOL [Concomitant]
     Active Substance: CARVEDILOL
     Indication: Hypertrophic cardiomyopathy
     Dosage: DAILY DOSE 10 MG
     Route: 048
  6. EXFORGE [Concomitant]
     Active Substance: AMLODIPINE BESYLATE\VALSARTAN
     Indication: Hypertension
     Dosage: UNK
     Route: 048
  7. QUINAPRIL [Concomitant]
     Active Substance: QUINAPRIL
     Indication: Hypertension
     Dosage: DAILY DOSE 10 MG
     Route: 048
  8. ATORVASTATIN [Concomitant]
     Active Substance: ATORVASTATIN
     Indication: Hyperlipidaemia
     Dosage: DAILY DOSE 5MG
     Route: 048
  9. INDAPAMIDE [Concomitant]
     Active Substance: INDAPAMIDE
     Indication: Hypertension
     Dosage: DAILY DOSE 0.5MG
  10. AMLODIPINE [Concomitant]
     Active Substance: AMLODIPINE BESYLATE
     Indication: Hypertension
     Dosage: DAILY DOSE 2.5MG
     Route: 048
  11. FEBUXOSTAT [Concomitant]
     Active Substance: FEBUXOSTAT
     Indication: Hyperuricaemia
     Dosage: DAILY DOSE 10MG
     Route: 048

REACTIONS (6)
  - Thyroid haemorrhage [Recovering/Resolving]
  - Labelled drug-drug interaction medication error [Unknown]
  - Drug interaction [Unknown]
  - Thyroid mass [Recovering/Resolving]
  - Neck pain [Recovering/Resolving]
  - Swelling [Recovering/Resolving]

NARRATIVE: CASE EVENT DATE: 20211010
